FAERS Safety Report 12363343 (Version 1)
Quarter: 2016Q2

REPORT INFORMATION
  Report Type: Spontaneous
  Country: US (occurrence: US)
  Receive Date: 20160512
  Receipt Date: 20160512
  Transmission Date: 20160815
  Serious: No
  Sender: FDA-Public Use
  Company Number: US-UCBSA-2015007957

PATIENT
  Sex: Female

DRUGS (1)
  1. CIMZIA [Suspect]
     Active Substance: CERTOLIZUMAB PEGOL
     Indication: PRODUCT USED FOR UNKNOWN INDICATION
     Dosage: 400 MG, EV 2 WEEKS(QOW) (0-2-4 WEEKS), THEN EVERY 28 DAYS
     Route: 058
     Dates: start: 20140131, end: 20140327

REACTIONS (3)
  - Nausea [Unknown]
  - Fatigue [Unknown]
  - Chills [Unknown]
